FAERS Safety Report 20097348 (Version 1)
Quarter: 2021Q4

REPORT INFORMATION
  Report Type: Spontaneous
  Country: US (occurrence: None)
  Receive Date: 20211122
  Receipt Date: 20211122
  Transmission Date: 20220303
  Serious: Yes (Hospitalization, Other)
  Sender: FDA-Public Use
  Company Number: None

PATIENT
  Age: 62 Year
  Sex: Male

DRUGS (1)
  1. RYDAPT [Suspect]
     Active Substance: MIDOSTAURIN
     Indication: Systemic mastocytosis
     Dosage: FREQUENCY : TWICE A DAY;?
     Route: 048
     Dates: start: 202110

REACTIONS (2)
  - Drug interaction [None]
  - Myalgia [None]

NARRATIVE: CASE EVENT DATE: 20211028
